FAERS Safety Report 8417445 (Version 7)
Quarter: 2012Q4

REPORT INFORMATION
  Report Type: 
  Country: US (occurrence: US)
  Receive Date: 20120221
  Receipt Date: 20120921
  Transmission Date: 20130627
  Serious: Yes (Hospitalization)
  Sender: FDA-Public Use
  Company Number: US-BIOGENIDEC-2012BI005668

PATIENT
  Age: 64 Year
  Sex: Female

DRUGS (3)
  1. AVONEX [Suspect]
     Indication: MULTIPLE SCLEROSIS
     Route: 030
     Dates: start: 20011011, end: 2003
  2. AVONEX [Suspect]
     Indication: MULTIPLE SCLEROSIS
     Route: 030
     Dates: start: 2003
  3. BLOOD THINNER (NOS) [Concomitant]
     Indication: THROMBOSIS PROPHYLAXIS
     Route: 048
     Dates: start: 20111210, end: 20111217

REACTIONS (7)
  - Intracranial aneurysm [Recovered/Resolved]
  - Fall [Recovered/Resolved]
  - Facial bones fracture [Recovered/Resolved]
  - Optic nerve injury [Unknown]
  - VIIth nerve injury [Unknown]
  - Tumour rupture [Recovered/Resolved]
  - Cardiac disorder [Recovered/Resolved]
